FAERS Safety Report 20382441 (Version 1)
Quarter: 2022Q1

REPORT INFORMATION
  Report Type: Report from Study
  Country: GB (occurrence: GB)
  Receive Date: 20220127
  Receipt Date: 20220127
  Transmission Date: 20220423
  Serious: Yes (Death)
  Sender: FDA-Public Use
  Company Number: GB-PFIZER INC-202200124190

PATIENT

DRUGS (4)
  1. CYTARABINE [Suspect]
     Active Substance: CYTARABINE
     Indication: Chronic myeloid leukaemia
     Dosage: 2000 MG/M2, CYCLIC (DAYS 1-5)
     Route: 042
  2. IDARUBICIN HYDROCHLORIDE [Suspect]
     Active Substance: IDARUBICIN HYDROCHLORIDE
     Indication: Chronic myeloid leukaemia
     Dosage: 8 MG/M2, CYCLIC (DAYS 3-5)
     Route: 042
  3. PONATINIB [Suspect]
     Active Substance: PONATINIB
     Indication: Chronic myeloid leukaemia
     Dosage: 30 MG, 1X/DAY
     Route: 048
  4. FLUDARABINE [Suspect]
     Active Substance: FLUDARABINE PHOSPHATE
     Indication: Chronic myeloid leukaemia
     Dosage: 30 MG/M2, CYCLIC (DAYS 1-5)
     Route: 042

REACTIONS (1)
  - Cardiomyopathy [Fatal]
